FAERS Safety Report 5974113-7 (Version None)
Quarter: 2008Q4

REPORT INFORMATION
  Report Type: 
  Country: None (occurrence: None)
  Receive Date: 20081201
  Receipt Date: 20081119
  Transmission Date: 20090506
  Serious: Yes (Other)
  Sender: FDA-Public Use
  Company Number: BR-PFIZER INC-2008038012

PATIENT
  Sex: Female
  Weight: 60 kg

DRUGS (5)
  1. FRONTAL XR [Suspect]
     Indication: ANXIETY
     Route: 048
     Dates: start: 20080501
  2. FRONTAL [Suspect]
     Dates: start: 20081109
  3. CITALOPRAM HYDROBROMIDE [Concomitant]
     Route: 048
     Dates: start: 20080425
  4. CENTRUM [Concomitant]
  5. BORAGO OFFICINALIS [Concomitant]
     Dates: start: 20080101

REACTIONS (28)
  - ABDOMINAL DISCOMFORT [None]
  - ALOPECIA [None]
  - ANXIETY [None]
  - ARTHRALGIA [None]
  - BLOOD PRESSURE FLUCTUATION [None]
  - BLOOD PRESSURE INCREASED [None]
  - BRADYPHRENIA [None]
  - DEPRESSED MOOD [None]
  - DIZZINESS [None]
  - DRUG DOSE OMISSION [None]
  - DRUG INEFFECTIVE [None]
  - DRY MOUTH [None]
  - FEELING ABNORMAL [None]
  - FEELING COLD [None]
  - FEELING HOT [None]
  - HEADACHE [None]
  - HYPOAESTHESIA [None]
  - MALAISE [None]
  - MENSTRUATION IRREGULAR [None]
  - MOOD ALTERED [None]
  - NASAL DISCOMFORT [None]
  - NAUSEA [None]
  - OBSESSIVE THOUGHTS [None]
  - PALPITATIONS [None]
  - TACHYCARDIA [None]
  - TENDON PAIN [None]
  - TENSION [None]
  - TREMOR [None]
